FAERS Safety Report 16867931 (Version 4)
Quarter: 2020Q3

REPORT INFORMATION
  Report Type: Other
  Country: ES (occurrence: ES)
  Receive Date: 20190930
  Receipt Date: 20200908
  Transmission Date: 20201102
  Serious: Yes (Other)
  Sender: FDA-Public Use
  Company Number: ES-ROCHE-2412643

PATIENT
  Age: 38 Year
  Sex: Male

DRUGS (18)
  1. LOPINAVIR/RITONAVIR [Suspect]
     Active Substance: LOPINAVIR\RITONAVIR
     Dosage: 300/75 MG BID (MONOTHERAPY)
     Route: 065
     Dates: start: 201110, end: 2013
  2. NEVIRAPINE. [Suspect]
     Active Substance: NEVIRAPINE
     Indication: ANTIRETROVIRAL THERAPY
     Dosage: UNK
     Route: 065
     Dates: start: 2001, end: 2002
  3. LOPINAVIR/RITONAVIR [Suspect]
     Active Substance: LOPINAVIR\RITONAVIR
     Dosage: 200/50 MG BID
     Route: 065
     Dates: start: 2013, end: 2013
  4. TENOFOVIR DISOPROXIL FUMARATE. [Suspect]
     Active Substance: TENOFOVIR DISOPROXIL FUMARATE
     Indication: ANTIRETROVIRAL THERAPY
     Dosage: UNK
     Route: 065
     Dates: start: 2002, end: 2011
  5. ZIDOVUDINE. [Suspect]
     Active Substance: ZIDOVUDINE
     Indication: ANTIRETROVIRAL THERAPY
     Dosage: UNK
     Route: 065
     Dates: start: 1994, end: 1997
  6. SAQUINAVIR [Suspect]
     Active Substance: SAQUINAVIR
     Indication: ANTIRETROVIRAL THERAPY
     Dosage: UNK
     Route: 065
     Dates: start: 1996, end: 1997
  7. ABACAVIR. [Suspect]
     Active Substance: ABACAVIR
     Indication: ANTIRETROVIRAL THERAPY
     Dosage: UNK
     Route: 065
     Dates: start: 2008, end: 2011
  8. STAVUDINE. [Suspect]
     Active Substance: STAVUDINE
     Indication: ANTIRETROVIRAL THERAPY
     Dosage: UNK
     Route: 065
     Dates: start: 1997, end: 2001
  9. STAVUDINE. [Suspect]
     Active Substance: STAVUDINE
     Dosage: UNK
     Route: 065
     Dates: start: 2002, end: 2002
  10. DIDANOSINE. [Suspect]
     Active Substance: DIDANOSINE
     Dosage: UNK
     Route: 065
     Dates: start: 1994, end: 1997
  11. LAMIVUDINE. [Suspect]
     Active Substance: LAMIVUDINE
     Indication: ANTIRETROVIRAL THERAPY
     Dosage: UNK
     Route: 065
     Dates: start: 1997, end: 2001
  12. INDINAVIR [Suspect]
     Active Substance: INDINAVIR
     Indication: ANTIRETROVIRAL THERAPY
     Dosage: UNK
     Route: 065
     Dates: start: 1997, end: 1998
  13. DIDANOSINE. [Suspect]
     Active Substance: DIDANOSINE
     Indication: ANTIRETROVIRAL THERAPY
     Dosage: UNK
     Route: 065
     Dates: start: 2001, end: 2008
  14. LOPINAVIR/RITONAVIR [Suspect]
     Active Substance: LOPINAVIR\RITONAVIR
     Dosage: 300/75 MG BID (DOSE ADJUSTMENT)
     Route: 065
     Dates: start: 201009, end: 201110
  15. NELFINAVIR [Suspect]
     Active Substance: NELFINAVIR
     Indication: ANTIRETROVIRAL THERAPY
     Dosage: UNK
     Route: 065
     Dates: start: 1998, end: 2002
  16. LOPINAVIR/RITONAVIR [Suspect]
     Active Substance: LOPINAVIR\RITONAVIR
     Indication: ANTIRETROVIRAL THERAPY
     Dosage: 300/75 MG BID
     Route: 065
     Dates: start: 2013, end: 201510
  17. LOPINAVIR/RITONAVIR [Suspect]
     Active Substance: LOPINAVIR\RITONAVIR
     Dosage: 400/100 MG TWICE DAILY
     Route: 065
     Dates: start: 2002, end: 2010
  18. EFAVIRENZ. [Suspect]
     Active Substance: EFAVIRENZ
     Indication: ANTIRETROVIRAL THERAPY
     Route: 065
     Dates: start: 2001, end: 2001

REACTIONS (18)
  - Fatigue [Recovered/Resolved]
  - Asthenia [Recovered/Resolved]
  - Fanconi syndrome [Recovered/Resolved]
  - Lipodystrophy acquired [Unknown]
  - Overdose [Unknown]
  - Pathological fracture [Unknown]
  - Hypophosphataemia [Recovered/Resolved]
  - Virologic failure [Unknown]
  - Renal impairment [Recovered/Resolved]
  - Bone metabolism disorder [Recovered/Resolved]
  - Proteinuria [Recovered/Resolved]
  - Chronic kidney disease [Recovered/Resolved]
  - Dyslipidaemia [Unknown]
  - Musculoskeletal pain [Recovered/Resolved]
  - Neurotoxicity [Unknown]
  - Renal glycosuria [Recovered/Resolved]
  - Musculoskeletal toxicity [Recovered/Resolved]
  - Myalgia [Recovered/Resolved]

NARRATIVE: CASE EVENT DATE: 1996
